FAERS Safety Report 15191225 (Version 1)
Quarter: 2018Q3

REPORT INFORMATION
  Report Type: Spontaneous
  Country: US (occurrence: US)
  Receive Date: 20180724
  Receipt Date: 20180724
  Transmission Date: 20181010
  Serious: Yes (Other)
  Sender: FDA-Public Use
  Company Number: US-AMGEN-USASP2018028219

PATIENT
  Age: 60 Year
  Sex: Male
  Weight: 104.31 kg

DRUGS (7)
  1. FAMOTIDINE. [Concomitant]
     Active Substance: FAMOTIDINE
     Dosage: 25 MG, QD
     Dates: start: 20180220, end: 20180220
  2. FOSAPREPITANT [Concomitant]
     Active Substance: FOSAPREPITANT
     Dosage: 150 MG, QD
     Dates: start: 20180220, end: 20180220
  3. LORAZEPAM. [Concomitant]
     Active Substance: LORAZEPAM
     Dosage: 0.5 MG, QD
     Dates: start: 20180220, end: 20180220
  4. KYPROLIS [Suspect]
     Active Substance: CARFILZOMIB
     Dosage: 60 MG, TWICE PER WEEK ON TWO CONSECUTIVE DAYS
     Route: 042
     Dates: start: 20180220
  5. DEXAMETHASONE. [Concomitant]
     Active Substance: DEXAMETHASONE
     Dosage: 20 MG, QD
     Dates: start: 20180220, end: 20180220
  6. KYPROLIS [Suspect]
     Active Substance: CARFILZOMIB
     Indication: PLASMA CELL MYELOMA
     Dosage: 80 MG, QWK
     Route: 042
  7. DIPHENADIONE [Concomitant]
     Dosage: 25 MG, QD
     Dates: start: 20180220, end: 20180220

REACTIONS (5)
  - Thrombophlebitis [Not Recovered/Not Resolved]
  - Treatment noncompliance [Unknown]
  - Off label use [Unknown]
  - Refusal of treatment by patient [Unknown]
  - Feeling abnormal [Unknown]

NARRATIVE: CASE EVENT DATE: 201802
